FAERS Safety Report 5055980-0 (Version None)
Quarter: 2006Q3

REPORT INFORMATION
  Report Type: 
  Country: None (occurrence: None)
  Receive Date: 20060714
  Receipt Date: 20060707
  Transmission Date: 20061208
  Serious: Yes (Other)
  Sender: FDA-Public Use
  Company Number: 430036M06USA

PATIENT
  Age: 51 Year
  Sex: Male

DRUGS (1)
  1. NOVANTRONE [Suspect]
     Indication: MULTIPLE SCLEROSIS
     Dosage: 1 IN 3 MONTHS
     Dates: start: 20050101, end: 20060601

REACTIONS (3)
  - CARDIAC OUTPUT DECREASED [None]
  - CARDIOMYOPATHY [None]
  - EXERCISE TOLERANCE DECREASED [None]
